FAERS Safety Report 10266175 (Version 2)
Quarter: 2014Q3

REPORT INFORMATION
  Report Type: Spontaneous
  Country: US (occurrence: US)
  Receive Date: 20140627
  Receipt Date: 20140820
  Transmission Date: 20150326
  Serious: Yes (Other)
  Sender: FDA-Public Use
  Company Number: US-TEVA-490204USA

PATIENT
  Sex: Female

DRUGS (2)
  1. NUVIGIL [Suspect]
     Active Substance: ARMODAFINIL
     Route: 048
  2. PROVIGIL [Suspect]
     Active Substance: MODAFINIL

REACTIONS (2)
  - Drug ineffective [Unknown]
  - Suicidal ideation [Unknown]
